FAERS Safety Report 13177207 (Version 1)
Quarter: 2017Q1

REPORT INFORMATION
  Report Type: Report from Study
  Country: FR (occurrence: FR)
  Receive Date: 20170201
  Receipt Date: 20170201
  Transmission Date: 20170428
  Serious: No
  Sender: FDA-Public Use
  Company Number: FR-EXELIXIS-CABO-16007395

PATIENT
  Age: 47 Year
  Sex: Female
  Weight: 60 kg

DRUGS (17)
  1. CABOMETYX [Suspect]
     Active Substance: CABOZANTINIB S-MALATE
     Indication: RENAL CELL CARCINOMA
     Dosage: 60 MG, QD
     Route: 048
     Dates: start: 20160927
  2. DOMPERIDONE [Concomitant]
     Active Substance: DOMPERIDONE
  3. ONDANSETRON [Concomitant]
     Active Substance: ONDANSETRON
  4. DELICAL [Concomitant]
     Indication: NUTRITIONAL SUPPLEMENTATION
  5. LEVOTHYROX [Concomitant]
     Active Substance: LEVOTHYROXINE
     Indication: HYPOTHYROIDISM
  6. FRAGMINE [Concomitant]
     Active Substance: DALTEPARIN SODIUM
     Indication: PROPHYLAXIS
  7. DOLIPRANE [Concomitant]
     Active Substance: ACETAMINOPHEN
  8. LANSOPRAZOLE. [Concomitant]
     Active Substance: LANSOPRAZOLE
  9. ECONOZOLE [Concomitant]
     Active Substance: ECONAZOLE
     Indication: FUNGAL INFECTION
  10. ALPRAZOLAM. [Concomitant]
     Active Substance: ALPRAZOLAM
  11. UVEDOSE [Concomitant]
     Active Substance: CHOLECALCIFEROL
     Indication: SURGERY
  12. LYRICA [Concomitant]
     Active Substance: PREGABALIN
  13. LAROXYL [Concomitant]
     Active Substance: AMITRIPTYLINE
  14. FOLIC ACID. [Concomitant]
     Active Substance: FOLIC ACID
     Indication: FOLATE DEFICIENCY
  15. AMLODIPIN [Concomitant]
     Active Substance: AMLODIPINE BESYLATE
     Indication: HYPERTENSION
  16. TOPALGIC [Concomitant]
     Active Substance: TRAMADOL
     Indication: PAIN
  17. FRAXIPARINE [Concomitant]
     Active Substance: NADROPARIN CALCIUM

REACTIONS (9)
  - Back pain [Recovering/Resolving]
  - Blood bicarbonate increased [Unknown]
  - Eastern Cooperative Oncology Group performance status worsened [Unknown]
  - Nausea [Unknown]
  - C-reactive protein increased [Unknown]
  - Lymphopenia [Unknown]
  - Blood pressure increased [Recovered/Resolved with Sequelae]
  - Fatigue [Recovering/Resolving]
  - Hypoalbuminaemia [Unknown]

NARRATIVE: CASE EVENT DATE: 20161017
